FAERS Safety Report 18380890 (Version 1)
Quarter: 2020Q4

REPORT INFORMATION
  Report Type: Report from Study
  Country: US (occurrence: US)
  Receive Date: 20201014
  Receipt Date: 20201014
  Transmission Date: 20210114
  Serious: Yes (Congenital Anomaly)
  Sender: FDA-Public Use
  Company Number: US-UCBSA-2020039601

PATIENT
  Age: 0 Year
  Sex: Male
  Weight: 3.8 kg

DRUGS (21)
  1. PRENATAL VITAMINS [MINERALS NOS;VITAMINS NOS] [Concomitant]
     Active Substance: MINERALS\VITAMINS
     Dosage: 3 DOSAGE FORM, ONCE DAILY (QD)
     Route: 064
     Dates: start: 20180201, end: 20180227
  2. PROGESTERONE. [Concomitant]
     Active Substance: PROGESTERONE
     Indication: PREGNANCY
     Dosage: 50 MILLIGRAM, ONCE DAILY (QD)
     Route: 064
     Dates: start: 20171222, end: 20180217
  3. SULFASALAZINE. [Concomitant]
     Active Substance: SULFASALAZINE
     Indication: RHEUMATOID ARTHRITIS
     Dosage: 1000 MILLIGRAM, ONCE DAILY (QD)
     Route: 064
     Dates: start: 20171209, end: 20180928
  4. TDAP [Concomitant]
     Active Substance: TETANUS TOXOID, REDUCED DIPHTHERIA TOXOID AND ACELLULAR PERTUSSIS VACCINE ADSORBED, TDAP
     Indication: PRODUCT USED FOR UNKNOWN INDICATION
     Dosage: 1 SHOT
     Route: 064
     Dates: start: 20090515, end: 20090515
  5. TDAP [Concomitant]
     Active Substance: TETANUS TOXOID, REDUCED DIPHTHERIA TOXOID AND ACELLULAR PERTUSSIS VACCINE ADSORBED, TDAP
     Dosage: 1 SHOT
     Route: 064
     Dates: start: 20180721, end: 20180721
  6. CALCIUM + VITAMIN D [CALCIUM;COLECALCIFEROL] [Concomitant]
     Active Substance: CALCIUM\CHOLECALCIFEROL
     Indication: PRODUCT USED FOR UNKNOWN INDICATION
     Dosage: 2 UNK, ONCE DAILY (QD)
     Route: 064
     Dates: start: 20180125, end: 20180928
  7. PLAQUENIL [Concomitant]
     Active Substance: HYDROXYCHLOROQUINE SULFATE
     Indication: RHEUMATOID ARTHRITIS
     Dosage: 400 MILLIGRAM, ONCE DAILY (QD)
     Route: 064
     Dates: start: 20171209, end: 20180928
  8. PRENATAL VITAMINS [MINERALS NOS;VITAMINS NOS] [Concomitant]
     Active Substance: MINERALS\VITAMINS
     Indication: PRODUCT USED FOR UNKNOWN INDICATION
     Dosage: 2 DOSAGE FORM, ONCE DAILY (QD)
     Route: 064
     Dates: start: 20180228, end: 20180928
  9. BABY ASPIRIN [Concomitant]
     Active Substance: ASPIRIN
     Indication: PREGNANCY
     Dosage: 81 MILLIGRAM, ONCE DAILY (QD)
     Route: 064
     Dates: start: 20171222, end: 20180901
  10. PREDNISONE. [Concomitant]
     Active Substance: PREDNISONE
     Indication: RHEUMATOID ARTHRITIS
     Dosage: 10 MILLIGRAM, ONCE DAILY (QD)
     Route: 064
     Dates: start: 20180525, end: 20180531
  11. PRENATAL VITAMINS [MINERALS NOS;VITAMINS NOS] [Concomitant]
     Active Substance: MINERALS\VITAMINS
     Dosage: 1 DOSAGE FORM, ONCE DAILY (QD)
     Route: 064
     Dates: start: 20160101, end: 20180131
  12. TYLENOL EXTRA STRENGTH [Concomitant]
     Active Substance: ACETAMINOPHEN
     Indication: PYREXIA
     Dosage: 1000 MILLIGRAM, WEEKLY (QW)
     Route: 064
     Dates: start: 20180301, end: 20180928
  13. TUMS [Concomitant]
     Active Substance: CALCIUM CARBONATE
     Indication: DYSPEPSIA
     Dosage: 2.5 DOSAGE FORM, WEEKLY (QW)
     Route: 064
     Dates: start: 20180515, end: 20180528
  14. CERTOLIZUMAB PEGOL RA [Suspect]
     Active Substance: CERTOLIZUMAB PEGOL
     Indication: RHEUMATOID ARTHRITIS
     Dosage: 200 MILLIGRAM, EV 2 WEEKS(QOW)
     Route: 064
     Dates: start: 20171223, end: 20180903
  15. DHA [Concomitant]
     Active Substance: DIETARY SUPPLEMENT
     Indication: PRODUCT USED FOR UNKNOWN INDICATION
     Dosage: 2 DOSAGE FORM, ONCE DAILY (QD)
     Route: 064
     Dates: start: 20180210
  16. DHA [Concomitant]
     Active Substance: DIETARY SUPPLEMENT
     Dosage: 2 DOSAGE FORM, ONCE DAILY (QD)
     Route: 064
     Dates: start: 20171209, end: 20180209
  17. PREDNISONE. [Concomitant]
     Active Substance: PREDNISONE
     Dosage: 5 MILLIGRAM, ONCE DAILY (QD)
     Route: 064
     Dates: start: 20180601, end: 20180607
  18. PROBIOTICS NOS [Concomitant]
     Active Substance: PROBIOTICS NOS
     Indication: PRODUCT USED FOR UNKNOWN INDICATION
     Dosage: 1 DOSAGE FORM, ONCE DAILY (QD)
     Route: 064
     Dates: start: 20171209, end: 20180403
  19. TYLENOL EXTRA STRENGTH [Concomitant]
     Active Substance: ACETAMINOPHEN
     Indication: ARTHRALGIA
     Dosage: 1000 MILLIGRAM, 3X/DAY (TID)
     Route: 064
     Dates: start: 20180118, end: 20180119
  20. VITAMIN D [VITAMIN D NOS] [Concomitant]
     Active Substance: VITAMIN D NOS
     Indication: PRODUCT USED FOR UNKNOWN INDICATION
     Dosage: 1000 INTERNATIONAL UNIT, ONCE DAILY (QD)
     Route: 064
     Dates: start: 20171209, end: 20180928
  21. ESTRADIOL. [Concomitant]
     Active Substance: ESTRADIOL
     Indication: PREGNANCY
     Dosage: 3 MILLIGRAM, 3X/DAY (TID)
     Route: 064
     Dates: start: 20171222, end: 20180217

REACTIONS (2)
  - Cryptorchism [Unknown]
  - Maternal exposure before pregnancy [Unknown]

NARRATIVE: CASE EVENT DATE: 20171223
